FAERS Safety Report 12248794 (Version 2)
Quarter: 2016Q2

REPORT INFORMATION
  Report Type: Spontaneous
  Country: US (occurrence: US)
  Receive Date: 20160408
  Receipt Date: 20160425
  Transmission Date: 20160815
  Serious: Yes (Other)
  Sender: FDA-Public Use
  Company Number: US-PFIZER INC-2016193739

PATIENT
  Age: 59 Year
  Sex: Male
  Weight: 93 kg

DRUGS (6)
  1. CHANTIX [Suspect]
     Active Substance: VARENICLINE TARTRATE
     Indication: SMOKING CESSATION THERAPY
     Dosage: UNK, 1X/DAY
     Route: 048
     Dates: start: 201601, end: 201601
  2. NORVASC [Concomitant]
     Active Substance: AMLODIPINE BESYLATE
     Dosage: 5 MG, 1X/DAY
  3. FOLIC ACID. [Concomitant]
     Active Substance: FOLIC ACID
     Indication: PROPHYLAXIS
     Dosage: 1 MG, UNK
  4. 6MP [Concomitant]
     Active Substance: MERCAPTOPURINE
     Indication: COLITIS
     Dosage: 1.5 DF, UNK
  5. LIALDA [Concomitant]
     Active Substance: MESALAMINE
     Indication: COLITIS
     Dosage: 1.2 G, UNK
  6. HYZAAR [Concomitant]
     Active Substance: HYDROCHLOROTHIAZIDE\LOSARTAN POTASSIUM
     Dosage: UNK, 1X/DAY (LOSARTAN POTASSIUM: 100: HYDROCHLOROTHIAZIDE 25)

REACTIONS (4)
  - Retinal vein occlusion [Recovered/Resolved with Sequelae]
  - Visual acuity reduced [Not Recovered/Not Resolved]
  - Drug ineffective [Unknown]
  - Visual impairment [Recovering/Resolving]

NARRATIVE: CASE EVENT DATE: 201601
